FAERS Safety Report 16411308 (Version 1)
Quarter: 2019Q2

REPORT INFORMATION
  Report Type: Spontaneous
  Country: GB (occurrence: GB)
  Receive Date: 20190610
  Receipt Date: 20190610
  Transmission Date: 20190711
  Serious: Yes (Other)
  Sender: FDA-Public Use
  Company Number: GB-PFIZER INC-2019240914

PATIENT
  Age: 75 Year
  Sex: Male

DRUGS (3)
  1. ZOTON FASTAB [Suspect]
     Active Substance: LANSOPRAZOLE
     Dosage: UNK
  2. MORPHINE SULFATE. [Suspect]
     Active Substance: MORPHINE SULFATE
     Dosage: UNK
  3. PREGABALIN. [Suspect]
     Active Substance: PREGABALIN
     Dosage: 300 MG, 3X/DAY

REACTIONS (1)
  - Spinal fracture [Unknown]
